FAERS Safety Report 20476420 (Version 1)
Quarter: 2022Q1

REPORT INFORMATION
  Report Type: Spontaneous
  Country: US (occurrence: US)
  Receive Date: 20220215
  Receipt Date: 20220215
  Transmission Date: 20220423
  Serious: No
  Sender: FDA-Public Use
  Company Number: US-009507513-2202USA003143

PATIENT
  Age: 37 Year
  Sex: Male

DRUGS (2)
  1. PRIMAXIN IV [Suspect]
     Active Substance: CILASTATIN SODIUM\IMIPENEM
     Indication: Cardiac tamponade
     Dosage: 500 MILLIGRAM, EVERY 6 HOURS
     Route: 042
  2. SULFAMETHOXAZOLE\TRIMETHOPRIM [Concomitant]
     Active Substance: SULFAMETHOXAZOLE\TRIMETHOPRIM
     Indication: Cardiac tamponade
     Dosage: 12 MILLIGRAM/KILOGRAM, PER DAY

REACTIONS (1)
  - Product use in unapproved indication [Unknown]
